FAERS Safety Report 12212963 (Version 1)
Quarter: 2016Q1

REPORT INFORMATION
  Report Type: Other
  Country: US (occurrence: US)
  Receive Date: 20160328
  Receipt Date: 20160328
  Transmission Date: 20160526
  Serious: No
  Sender: FDA-Public Use
  Company Number: US-LUPIN PHARMACEUTICALS INC.-2015-04539

PATIENT
  Age: 49 Year
  Sex: Male

DRUGS (7)
  1. PRAZOSIN [Concomitant]
     Active Substance: PRAZOSIN
     Dosage: 1 MG IN THE MORNING AND 2 MG IN THE NIGHT
     Route: 065
  2. PRAZOSIN [Concomitant]
     Active Substance: PRAZOSIN
     Dosage: 1 MG IN THE MORNING AND 4 MG IN THE NIGHT
     Route: 065
  3. PRAZOSIN [Concomitant]
     Active Substance: PRAZOSIN
     Dosage: 1 MG IN THE MORNING, 2 MG IN THE NOON AND 2 MG IN THE NIGHT
     Route: 065
  4. SERTRALINE [Concomitant]
     Active Substance: SERTRALINE HYDROCHLORIDE
     Dosage: 250 MG EVERY MORNING
     Route: 065
  5. PRAZOSIN [Concomitant]
     Active Substance: PRAZOSIN
     Indication: POST-TRAUMATIC STRESS DISORDER
     Route: 065
  6. SERTRALINE [Concomitant]
     Active Substance: SERTRALINE HYDROCHLORIDE
     Indication: POST-TRAUMATIC STRESS DISORDER
     Dosage: 200 MG DAILY
     Route: 065
  7. ZOLPIDEM [Suspect]
     Active Substance: ZOLPIDEM\ZOLPIDEM TARTRATE
     Indication: POST-TRAUMATIC STRESS DISORDER
     Dosage: 10 MG AT NIGHT
     Route: 065

REACTIONS (1)
  - Somnolence [Unknown]
